FAERS Safety Report 12758810 (Version 1)
Quarter: 2016Q3

REPORT INFORMATION
  Report Type: Spontaneous
  Country: US (occurrence: US)
  Receive Date: 20160915
  Receipt Date: 20160915
  Transmission Date: 20161109
  Serious: No
  Sender: FDA-Public Use
  Company Number: None

PATIENT
  Age: 50 Year
  Sex: Male

DRUGS (1)
  1. COSENTYX [Suspect]
     Active Substance: SECUKINUMAB
     Indication: RHEUMATOID ARTHRITIS
     Dosage: 150MG INJECT 2 PNES SQ EVERY 4 WEEKS SQ
     Route: 058
     Dates: start: 20160610, end: 20160822

REACTIONS (3)
  - Skin lesion [None]
  - Drug ineffective [None]
  - Miliaria [None]

NARRATIVE: CASE EVENT DATE: 20160822
